FAERS Safety Report 19817432 (Version 1)
Quarter: 2021Q3

REPORT INFORMATION
  Report Type: Spontaneous
  Country: US (occurrence: US)
  Receive Date: 20210910
  Receipt Date: 20210910
  Transmission Date: 20211014
  Serious: No
  Sender: FDA-Public Use
  Company Number: US-MAYNE PHARMA-2020MYN000622

PATIENT
  Age: 90 Year
  Sex: Female

DRUGS (1)
  1. CLONIDINE. [Suspect]
     Active Substance: CLONIDINE
     Indication: HYPERTENSION
     Dosage: 0.1 MG, QWEEK
     Route: 062
     Dates: start: 20201019, end: 20201224

REACTIONS (3)
  - Pruritus [Not Recovered/Not Resolved]
  - Application site burn [Not Recovered/Not Resolved]
  - Dizziness [Not Recovered/Not Resolved]
